FAERS Safety Report 14126894 (Version 1)
Quarter: 2017Q4

REPORT INFORMATION
  Report Type: Spontaneous
  Country: US (occurrence: US)
  Receive Date: 20171025
  Receipt Date: 20171025
  Transmission Date: 20180321
  Serious: No
  Sender: FDA-Public Use
  Company Number: US-MYLANLABS-2017M1066578

PATIENT
  Sex: Female

DRUGS (3)
  1. AZELASTINE/FLUTICASONE [Suspect]
     Active Substance: AZELASTINE HYDROCHLORIDE\FLUTICASONE PROPIONATE
     Indication: NASAL VALVE COLLAPSE
  2. AZELASTINE/FLUTICASONE [Suspect]
     Active Substance: AZELASTINE HYDROCHLORIDE\FLUTICASONE PROPIONATE
     Indication: PARANASAL SINUS DISCOMFORT
     Dosage: 1 DF, QD
     Route: 045
  3. AZELASTINE/FLUTICASONE [Suspect]
     Active Substance: AZELASTINE HYDROCHLORIDE\FLUTICASONE PROPIONATE
     Indication: RHINORRHOEA

REACTIONS (4)
  - Nasal dryness [None]
  - Off label use [Recovered/Resolved]
  - Drug ineffective [Unknown]
  - Intentional overdose [Recovered/Resolved]
